FAERS Safety Report 24125599 (Version 4)
Quarter: 2024Q3

REPORT INFORMATION
  Report Type: Spontaneous
  Country: US (occurrence: US)
  Receive Date: 20240723
  Receipt Date: 20240906
  Transmission Date: 20241016
  Serious: Yes (Other)
  Sender: ROCHE
  Company Number: US-ROCHE-10000028803

PATIENT
  Age: 65 Year
  Sex: Male
  Weight: 131.54 kg

DRUGS (1)
  1. ERIVEDGE [Suspect]
     Active Substance: VISMODEGIB
     Indication: Basal cell naevus syndrome
     Dosage: 2 MONTHS ON AND 1 MONTH OFF
     Route: 048
     Dates: start: 201407

REACTIONS (4)
  - Lung carcinoma cell type unspecified stage IV [Recovered/Resolved]
  - Peripheral swelling [Not Recovered/Not Resolved]
  - Anger [Recovered/Resolved]
  - Off label use [Unknown]

NARRATIVE: CASE EVENT DATE: 20240601
